FAERS Safety Report 7449864-8 (Version None)
Quarter: 2011Q2

REPORT INFORMATION
  Report Type: 
  Country: None (occurrence: None)
  Receive Date: 20110421
  Receipt Date: 20110406
  Transmission Date: 20111010
  Serious: Yes (Life-Threatening, Other)
  Sender: FDA-Public Use
  Company Number: 012432

PATIENT
  Age: 19 Month
  Sex: Female

DRUGS (6)
  1. ETOPOSIDE [Concomitant]
  2. METHOTREXATE [Suspect]
     Dosage: INTRAVENOUS
     Route: 042
     Dates: start: 20091127, end: 20091127
  3. CYCLOPHOSPHAMIDE [Concomitant]
  4. BUSULFEX [Suspect]
     Indication: STEM CELL TRANSPLANT
     Dosage: 19.2 MG/KG, INTRAVENOUS
     Route: 042
     Dates: start: 20091107, end: 20091111
  5. ANTI-HUMAN THYMOCYTE IMMUNOGLOBULIN, EQUINE [Concomitant]
  6. PROGRAF [Concomitant]

REACTIONS (8)
  - ASPARTATE AMINOTRANSFERASE INCREASED [None]
  - BLOOD LACTATE DEHYDROGENASE INCREASED [None]
  - HAEMOLYSIS [None]
  - BLOOD CREATININE INCREASED [None]
  - THROMBOTIC MICROANGIOPATHY [None]
  - BLOOD BILIRUBIN INCREASED [None]
  - ALANINE AMINOTRANSFERASE INCREASED [None]
  - VENOOCCLUSIVE LIVER DISEASE [None]
